FAERS Safety Report 7247664-5 (Version None)
Quarter: 2011Q1

REPORT INFORMATION
  Report Type: 
  Country: None (occurrence: None)
  Receive Date: 20110127
  Receipt Date: 20110117
  Transmission Date: 20110831
  Serious: Yes (Hospitalization, Other)
  Sender: FDA-Public Use
  Company Number: FR-JNJFOC-20101207155

PATIENT
  Age: 45 Year
  Sex: Female

DRUGS (2)
  1. TRABECTEDIN [Suspect]
     Indication: OVARIAN CANCER
     Dosage: CYCLE 1
     Route: 042
  2. CAELYX [Suspect]
     Indication: OVARIAN CANCER
     Dosage: CYCLE 1
     Route: 042

REACTIONS (3)
  - PYREXIA [None]
  - APLASIA [None]
  - NEUTROPENIA [None]
